FAERS Safety Report 6896027-0 (Version None)
Quarter: 2010Q3

REPORT INFORMATION
  Report Type: 
  Country: None (occurrence: None)
  Receive Date: 20100802
  Receipt Date: 20100722
  Transmission Date: 20110219
  Serious: Yes (Death)
  Sender: FDA-Public Use
  Company Number: A0785920A

PATIENT
  Age: 46 Year
  Sex: Male
  Weight: 107.7 kg

DRUGS (5)
  1. AVANDAMET [Suspect]
     Indication: TYPE 2 DIABETES MELLITUS
     Route: 048
     Dates: start: 20061201, end: 20070814
  2. METHADONE HCL [Concomitant]
  3. LORTAB [Concomitant]
  4. KEFLEX [Concomitant]
  5. LISINOPRIL [Concomitant]

REACTIONS (6)
  - BLOOD CHOLESTEROL ABNORMAL [None]
  - BLOOD TRIGLYCERIDES INCREASED [None]
  - CARDIOVASCULAR DISORDER [None]
  - CHEST PAIN [None]
  - HYPERTENSION [None]
  - HYPERTENSIVE HEART DISEASE [None]
